FAERS Safety Report 23347692 (Version 1)
Quarter: 2023Q4

REPORT INFORMATION
  Report Type: Spontaneous
  Country: US (occurrence: None)
  Receive Date: 20231227
  Receipt Date: 20231227
  Transmission Date: 20240110
  Serious: No
  Sender: FDA-Public Use
  Company Number: None

PATIENT

DRUGS (1)
  1. VALTOCO [Suspect]
     Active Substance: DIAZEPAM
     Route: 045

REACTIONS (4)
  - Product prescribing error [None]
  - Product label confusion [None]
  - Product prescribing error [None]
  - Extra dose administered [None]
